FAERS Safety Report 19659651 (Version 1)
Quarter: 2021Q3

REPORT INFORMATION
  Report Type: Report from Study
  Country: None (occurrence: US)
  Receive Date: 20210804
  Receipt Date: 20210804
  Transmission Date: 20211014
  Serious: Yes (Other)
  Sender: FDA-Public Use
  Company Number: US-ABBVIE-21K-163-4014922-00

PATIENT
  Age: 41 Year
  Sex: Female

DRUGS (1)
  1. HUMIRA [Suspect]
     Active Substance: ADALIMUMAB
     Indication: HIDRADENITIS
     Dosage: CITRATE FREE
     Route: 058
     Dates: end: 2021

REACTIONS (4)
  - Deafness [Unknown]
  - Cyst [Unknown]
  - Hidradenitis [Not Recovered/Not Resolved]
  - Otorrhoea [Unknown]

NARRATIVE: CASE EVENT DATE: 20210719
